FAERS Safety Report 8435362-1 (Version None)
Quarter: 2012Q2

REPORT INFORMATION
  Report Type: 
  Country: None (occurrence: None)
  Receive Date: 20120614
  Receipt Date: 20120608
  Transmission Date: 20120825
  Serious: Yes (Death, Life-Threatening, Hospitalization)
  Sender: FDA-Public Use
  Company Number: KR-TEVA-2011000336

PATIENT
  Sex: Female

DRUGS (21)
  1. BENDAMUSTINE HYDROCHLORIDE [Suspect]
     Route: 042
     Dates: start: 20110216, end: 20110217
  2. METHYLPREDNISOLONE SODIUM SUCCINATE [Concomitant]
     Dates: start: 20110228, end: 20110308
  3. ACETYLSALICYLIC ACID SRT [Concomitant]
     Dates: start: 20080513
  4. DEXTROMETHORPHAN HYDROBROMIDE [Concomitant]
     Dates: start: 20110304, end: 20110308
  5. RITUXIMAB [Suspect]
     Route: 041
     Dates: start: 20110215, end: 20110215
  6. CHLORHEXIDINE GLUCONATE [Concomitant]
     Dates: start: 20110217, end: 20110223
  7. IPRATROPIUM BROMIDE [Concomitant]
     Dates: start: 20110306, end: 20110309
  8. DIHYDROCODEINE PHOSPHATE [Concomitant]
     Dates: start: 20110306, end: 20110309
  9. MEROPENEM [Concomitant]
     Dates: start: 20110307, end: 20110308
  10. CHLORPHENIRAMINE MALEATE [Concomitant]
     Dates: start: 20110111, end: 20110111
  11. DEXAMETHASONE [Concomitant]
     Dates: start: 20110111, end: 20110115
  12. PREDNISOLONE ACETATE [Concomitant]
     Dates: start: 20110308, end: 20110308
  13. ACETAMINOPHEN [Concomitant]
     Dates: start: 20110111, end: 20110111
  14. SUCRALFATE [Concomitant]
     Dates: start: 20110114, end: 20110115
  15. BENDAMUSTINE HYDROCHLORIDE [Suspect]
     Indication: DIFFUSE LARGE B-CELL LYMPHOMA RECURRENT
     Route: 041
     Dates: start: 20110112, end: 20110113
  16. RITUXIMAB [Suspect]
     Indication: DIFFUSE LARGE B-CELL LYMPHOMA RECURRENT
     Route: 041
     Dates: start: 20110111, end: 20110111
  17. DILTIAZEM HCL [Concomitant]
     Dates: start: 20080513
  18. GRANISETRON HYDROCHLORIDE [Concomitant]
     Dates: start: 20110112, end: 20110115
  19. CIMETIDINE [Concomitant]
     Dates: start: 20110114, end: 20110115
  20. TRIMETAZIDINE HYDROCHLORIDE [Concomitant]
     Dates: start: 20080513
  21. PREDNISOLONE [Concomitant]
     Dates: start: 20110305, end: 20110306

REACTIONS (2)
  - PNEUMONIA [None]
  - RESPIRATORY FAILURE [None]
